FAERS Safety Report 5801795-2 (Version None)
Quarter: 2008Q3

REPORT INFORMATION
  Report Type: 
  Country: None (occurrence: None)
  Receive Date: 20080702
  Receipt Date: 20080702
  Transmission Date: 20090109
  Serious: Yes (Hospitalization)
  Sender: FDA-Public Use
  Company Number: None

PATIENT
  Age: 73 Year
  Sex: Male
  Weight: 124.09 kg

DRUGS (2)
  1. WARFARIN SODIUM [Suspect]
     Dosage: 5 MG OTHER PO
     Route: 048
     Dates: start: 20051129, end: 20071004
  2. WARFARIN SODIUM [Suspect]
     Dosage: 10 MG OTHER PO
     Route: 048
     Dates: start: 20051129, end: 20071004

REACTIONS (2)
  - INTERNATIONAL NORMALISED RATIO ABNORMAL [None]
  - INTERNATIONAL NORMALISED RATIO INCREASED [None]
